FAERS Safety Report 17990872 (Version 1)
Quarter: 2020Q3

REPORT INFORMATION
  Report Type: Spontaneous
  Country: TR (occurrence: TR)
  Receive Date: 20200707
  Receipt Date: 20200707
  Transmission Date: 20201103
  Serious: Yes (Hospitalization, Disabling, Other)
  Sender: FDA-Public Use
  Company Number: TR-NOVOPROD-737223

PATIENT
  Age: 48 Year
  Sex: Female
  Weight: 63 kg

DRUGS (6)
  1. ALFAMET [Concomitant]
     Active Substance: METHYLDOPA
     Indication: HYPERTENSION
     Dosage: UNK ( 3 TIMES A DAY)
     Route: 065
  2. LANTUS [Concomitant]
     Active Substance: INSULIN GLARGINE
     Indication: TYPE 1 DIABETES MELLITUS
     Dosage: 20 IU, QD
     Route: 058
  3. NOVORAPID [Suspect]
     Active Substance: INSULIN ASPART
     Indication: TYPE 1 DIABETES MELLITUS
     Dosage: 30 IU, QD (14?0?16)
     Route: 058
  4. ECOPIRIN [Concomitant]
     Active Substance: ASPIRIN
     Dosage: ONCE DAILY
     Route: 048
  5. SANELOC [Concomitant]
     Active Substance: METOPROLOL
     Dosage: ONCE DAILY
     Route: 048
  6. CORDARONE [Concomitant]
     Active Substance: AMIODARONE HYDROCHLORIDE
     Dosage: ONCE DAILY
     Route: 048

REACTIONS (6)
  - Chronic kidney disease [Unknown]
  - Cardiac failure [Unknown]
  - Myocardial infarction [Unknown]
  - Blood glucose increased [Unknown]
  - Diabetic blindness [Not Recovered/Not Resolved]
  - Rib fracture [Unknown]

NARRATIVE: CASE EVENT DATE: 201906
